FAERS Safety Report 6134883-4 (Version None)
Quarter: 2009Q1

REPORT INFORMATION
  Report Type: 
  Country: None (occurrence: None)
  Receive Date: 20090327
  Receipt Date: 20090306
  Transmission Date: 20090719
  Serious: Yes (Hospitalization)
  Sender: FDA-Public Use
  Company Number: GB-PFIZER INC-2009182505

PATIENT

DRUGS (7)
  1. CHAMPIX [Suspect]
     Indication: SMOKING CESSATION THERAPY
     Route: 048
     Dates: start: 20090218, end: 20090226
  2. CITALOPRAM [Concomitant]
  3. GLIPIZIDE [Concomitant]
  4. LANSOPRAZOLE [Concomitant]
  5. ROSIGLITAZONE [Concomitant]
  6. SIMVASTATIN [Concomitant]
  7. ALL OTHER THERAPEUTIC PRODUCTS [Concomitant]

REACTIONS (1)
  - GRAND MAL CONVULSION [None]
